FAERS Safety Report 17833443 (Version 1)
Quarter: 2020Q2

REPORT INFORMATION
  Report Type: Spontaneous
  Country: US (occurrence: US)
  Receive Date: 20200528
  Receipt Date: 20200528
  Transmission Date: 20200714
  Serious: No
  Sender: FDA-Public Use
  Company Number: US-AMGEN-USASP2020084239

PATIENT
  Age: 78 Year
  Sex: Female

DRUGS (13)
  1. CHONDROITIN [Concomitant]
     Active Substance: CHONDROITIN
  2. PREDNISONE. [Concomitant]
     Active Substance: PREDNISONE
  3. PROLIA [Suspect]
     Active Substance: DENOSUMAB
     Indication: OSTEOPOROSIS POSTMENOPAUSAL
     Dosage: UNK, Q6MO
     Route: 065
  4. FISH OIL [Concomitant]
     Active Substance: FISH OIL
  5. ACIDOPHILUS [Concomitant]
     Active Substance: LACTOBACILLUS ACIDOPHILUS
  6. SELENIUM [Concomitant]
     Active Substance: SELENIUM
  7. VITAMIN D3 [Concomitant]
     Active Substance: CHOLECALCIFEROL
  8. GLUCOSAMINE [Concomitant]
     Active Substance: GLUCOSAMINE
  9. PRESERVISION [Concomitant]
     Active Substance: MINERALS\VITAMINS
  10. LOSARTAN. [Concomitant]
     Active Substance: LOSARTAN
  11. FUROSEMIDE. [Concomitant]
     Active Substance: FUROSEMIDE
     Dosage: OCCSSIONALLY
  12. METHOTREXATE. [Concomitant]
     Active Substance: METHOTREXATE
  13. FOLIC ACID. [Concomitant]
     Active Substance: FOLIC ACID

REACTIONS (1)
  - Bone pain [Unknown]

NARRATIVE: CASE EVENT DATE: 2020
